FAERS Safety Report 4882961-X (Version None)
Quarter: 2006Q1

REPORT INFORMATION
  Report Type: 
  Country: None (occurrence: None)
  Receive Date: 20060113
  Receipt Date: 20051221
  Transmission Date: 20060701
  Serious: Yes (Other)
  Sender: FDA-Public Use
  Company Number: 2005-12-1146

PATIENT
  Sex: Male

DRUGS (1)
  1. NASONEX [Suspect]
     Indication: POSTNASAL DRIP
     Dosage: 2 SPRAYS BID NASAL SPRAY

REACTIONS (2)
  - ACTIVATED PARTIAL THROMBOPLASTIN TIME PROLONGED [None]
  - INCREASED TENDENCY TO BRUISE [None]
